FAERS Safety Report 14954810 (Version 1)
Quarter: 2018Q2

REPORT INFORMATION
  Report Type: Spontaneous
  Country: CA (occurrence: CA)
  Receive Date: 20180530
  Receipt Date: 20180530
  Transmission Date: 20180711
  Serious: Yes (Hospitalization)
  Sender: FDA-Public Use
  Company Number: CA-009507513-1805CAN014125

PATIENT
  Age: 61 Year
  Sex: Female

DRUGS (1)
  1. KEYTRUDA [Suspect]
     Active Substance: PEMBROLIZUMAB
     Dosage: 2.0 MILLIGRAM, UNK
     Route: 042

REACTIONS (2)
  - Aspiration pleural cavity [Recovering/Resolving]
  - Pleural effusion [Recovering/Resolving]
